FAERS Safety Report 5232384-9 (Version None)
Quarter: 2007Q1

REPORT INFORMATION
  Report Type: 
  Country: None (occurrence: None)
  Receive Date: 20070205
  Receipt Date: 20070123
  Transmission Date: 20070707
  Serious: Yes (Hospitalization)
  Sender: FDA-Public Use
  Company Number: CAP03000188

PATIENT
  Age: 81 Year
  Sex: Female
  Weight: 70.3 kg

DRUGS (8)
  1. DIDROCAL (ETIDRONATE DISODIUM, / CALCIUM CARBONATE CYCLICAL) TABLET, 4 [Suspect]
     Indication: OSTEOPOROSIS
     Dosage: 1 TABLET ONCE DAILY, ORAL; SEE IMAGE
     Route: 048
     Dates: start: 20020501, end: 20041101
  2. DIDROCAL (ETIDRONATE DISODIUM, / CALCIUM CARBONATE CYCLICAL) TABLET, 4 [Suspect]
     Indication: OSTEOPOROSIS
     Dosage: 1 TABLET ONCE DAILY, ORAL; SEE IMAGE
     Route: 048
     Dates: start: 20041101, end: 20061201
  3. DIDROCAL (ETIDRONATE DISODIUM, / CALCIUM CARBONATE CYCLICAL) TABLET, 4 [Suspect]
     Indication: OSTEOPOROSIS
     Dosage: 1 TABLET ONCE DAILY, ORAL; SEE IMAGE
     Route: 048
     Dates: start: 20061201
  4. RAMIPRIL [Concomitant]
  5. ARTHROTEC (DICLOFENAC SODIUM) [Concomitant]
  6. VITAMIN B (THIAMINE HYDROCHLORIDE) [Concomitant]
  7. ASCORBIC ACID [Concomitant]
  8. GARLIC (ALLIUM SATIVUM) [Concomitant]

REACTIONS (7)
  - ARTHRALGIA [None]
  - BONE FORMATION INCREASED [None]
  - HYPOAESTHESIA [None]
  - MUSCLE ENZYME INCREASED [None]
  - MUSCLE SPASMS [None]
  - NERVE COMPRESSION [None]
  - POSTOPERATIVE WOUND INFECTION [None]
